FAERS Safety Report 9338923 (Version 2)
Quarter: 2013Q2

REPORT INFORMATION
  Report Type: Spontaneous
  Country: US (occurrence: US)
  Receive Date: 20130610
  Receipt Date: 20130625
  Transmission Date: 20140414
  Serious: Yes (Hospitalization, Other)
  Sender: FDA-Public Use
  Company Number: US-PFIZER INC-2013174294

PATIENT
  Age: 31 Year
  Sex: Male
  Weight: 97.51 kg

DRUGS (2)
  1. DILANTIN [Suspect]
     Indication: CONVULSION
     Dosage: 500 MG, 1X/DAY
     Route: 048
  2. PRIMIDONE [Suspect]
     Indication: CONVULSION
     Dosage: 750 MG, 2X/DAY

REACTIONS (4)
  - Cerebrovascular accident [Unknown]
  - Mutism [Recovered/Resolved]
  - Arthropathy [Unknown]
  - Drug ineffective [Unknown]
